FAERS Safety Report 25608585 (Version 1)
Quarter: 2025Q3

REPORT INFORMATION
  Report Type: Spontaneous
  Country: IN (occurrence: IN)
  Receive Date: 20250726
  Receipt Date: 20250726
  Transmission Date: 20251021
  Serious: Yes (Hospitalization)
  Sender: NOVITIUM PHARMA
  Company Number: IN-NOVITIUMPHARMA-2025INNVP01760

PATIENT
  Age: 96 Year
  Sex: Male

DRUGS (13)
  1. TRIHEXYPHENIDYL [Suspect]
     Active Substance: TRIHEXYPHENIDYL
     Indication: Neuropsychological symptoms
  2. PREGABALIN [Concomitant]
     Active Substance: PREGABALIN
     Indication: Pain in extremity
     Route: 048
  3. DULOXETINE [Concomitant]
     Active Substance: DULOXETINE
     Indication: Feeling cold
  4. QUETIAPINE [Concomitant]
     Active Substance: QUETIAPINE
     Indication: Neuropsychological symptoms
  5. QUETIAPINE [Concomitant]
     Active Substance: QUETIAPINE
  6. DONEPEZIL [Concomitant]
     Active Substance: DONEPEZIL
     Indication: Neuropsychological symptoms
  7. AMANTADINE [Concomitant]
     Active Substance: AMANTADINE
     Indication: Neuropsychological symptoms
  8. MEMANTINE [Concomitant]
     Active Substance: MEMANTINE
     Indication: Neuropsychological symptoms
  9. ARMODAFINIL [Concomitant]
     Active Substance: ARMODAFINIL
     Indication: Neuropsychological symptoms
  10. RASAGILINE [Concomitant]
     Active Substance: RASAGILINE
     Indication: Neuropsychological symptoms
  11. MELATONIN [Concomitant]
     Active Substance: MELATONIN
     Indication: Antipsychotic therapy
  12. RISPERIDONE [Concomitant]
     Active Substance: RISPERIDONE
     Indication: Neuropsychological symptoms
  13. RIVASTIGMINE [Concomitant]
     Active Substance: RIVASTIGMINE
     Indication: Product used for unknown indication

REACTIONS (1)
  - Aphthous ulcer [Recovered/Resolved]
